FAERS Safety Report 5456487-9 (Version None)
Quarter: 2007Q3

REPORT INFORMATION
  Report Type: 
  Country: None (occurrence: None)
  Receive Date: 20070918
  Receipt Date: 20070430
  Transmission Date: 20080115
  Serious: Yes (Other)
  Sender: FDA-Public Use
  Company Number: US-ASTRAZENECA-2006UW25291

PATIENT
  Age: 56 Year
  Sex: Male
  Weight: 126.4 kg

DRUGS (8)
  1. SEROQUEL [Suspect]
     Indication: PSYCHOTIC DISORDER
     Route: 048
     Dates: start: 20040501, end: 20040801
  2. SEROQUEL [Suspect]
     Indication: DEPRESSED MOOD
     Route: 048
     Dates: start: 20040501, end: 20040801
  3. SEROQUEL [Suspect]
     Indication: INSOMNIA
     Route: 048
     Dates: start: 20040501, end: 20040801
  4. SEROQUEL [Suspect]
     Route: 048
     Dates: start: 20040501, end: 20040801
  5. SEROQUEL [Suspect]
     Route: 048
     Dates: start: 20040501, end: 20040801
  6. SEROQUEL [Suspect]
     Route: 048
     Dates: start: 20040501, end: 20040801
  7. GEODON [Concomitant]
  8. ZYPREXA [Concomitant]

REACTIONS (2)
  - DIABETES MELLITUS [None]
  - DIABETIC KETOACIDOSIS [None]
